FAERS Safety Report 21944652 (Version 1)
Quarter: 2023Q1

REPORT INFORMATION
  Report Type: Spontaneous
  Country: US (occurrence: None)
  Receive Date: 20230201
  Receipt Date: 20230201
  Transmission Date: 20230417
  Serious: Yes (Life-Threatening, Hospitalization)
  Sender: FDA-Public Use
  Company Number: None

PATIENT
  Age: 63 Year
  Sex: Male
  Weight: 93.15 kg

DRUGS (1)
  1. VYVGART [Suspect]
     Active Substance: EFGARTIGIMOD ALFA-FCAB
     Indication: Myasthenia gravis
     Dosage: OTHER FREQUENCY : WEEKLY X4 WEEKS;?
     Route: 042
     Dates: start: 20220810, end: 20220817

REACTIONS (7)
  - Peripheral swelling [None]
  - Arthralgia [None]
  - Arthritis [None]
  - Hallucination, visual [None]
  - Oedema [None]
  - Skin discolouration [None]
  - Capillary nail refill test abnormal [None]

NARRATIVE: CASE EVENT DATE: 20220817
